FAERS Safety Report 9714164 (Version 1)
Quarter: 2013Q4

REPORT INFORMATION
  Report Type: Spontaneous
  Country: US (occurrence: US)
  Receive Date: 20131126
  Receipt Date: 20131126
  Transmission Date: 20140711
  Serious: No
  Sender: FDA-Public Use
  Company Number: US-GILEAD-2008-0019107

PATIENT
  Sex: Female
  Weight: 136.8 kg

DRUGS (8)
  1. LETAIRIS [Suspect]
     Indication: PULMONARY ARTERIAL HYPERTENSION
     Route: 048
     Dates: start: 20081028
  2. LASIX [Concomitant]
  3. ATENOLOL [Concomitant]
  4. BENICAR [Concomitant]
  5. MELOXICAM [Concomitant]
  6. ASPIRIN [Concomitant]
  7. PEPCID [Concomitant]
  8. MULTIVITAMIN [Concomitant]

REACTIONS (2)
  - Local swelling [None]
  - Sinus congestion [None]
